FAERS Safety Report 6400113-9 (Version None)
Quarter: 2009Q4

REPORT INFORMATION
  Report Type: 
  Country: None (occurrence: None)
  Receive Date: 20091014
  Receipt Date: 20091001
  Transmission Date: 20100525
  Serious: Yes (Hospitalization)
  Sender: FDA-Public Use
  Company Number: US-MYLANLABS-2009S1012699

PATIENT
  Age: 13 Year
  Sex: Female
  Weight: 41.3 kg

DRUGS (1)
  1. EMSAM [Suspect]
     Indication: MAJOR DEPRESSION
     Route: 062
     Dates: start: 20090707, end: 20090711

REACTIONS (2)
  - PSYCHOTIC DISORDER [None]
  - SCREAMING [None]
